FAERS Safety Report 8298166-9 (Version None)
Quarter: 2012Q2

REPORT INFORMATION
  Report Type: 
  Country: None (occurrence: None)
  Receive Date: 20120419
  Receipt Date: 20120309
  Transmission Date: 20120825
  Serious: Yes (Hospitalization, Other)
  Sender: FDA-Public Use
  Company Number: US-BRISTOL-MYERS SQUIBB COMPANY-16115800

PATIENT
  Age: 74 Year
  Sex: Male

DRUGS (2)
  1. YERVOY [Suspect]
     Indication: METASTATIC MALIGNANT MELANOMA
     Dosage: NO OF DOSES 3,15JUN11,06JUL11(376MG)
     Route: 042
     Dates: start: 20110525
  2. DACARBAZINE [Suspect]
     Indication: METASTATIC MALIGNANT MELANOMA
     Dosage: INFUS DTS 16JUN11,7JUL11
     Route: 042
     Dates: start: 20110525

REACTIONS (2)
  - NEPHRITIS AUTOIMMUNE [None]
  - CHILLS [None]
